FAERS Safety Report 12433295 (Version 1)
Quarter: 2016Q2

REPORT INFORMATION
  Report Type: Spontaneous
  Country: JP (occurrence: JP)
  Receive Date: 20160603
  Receipt Date: 20160603
  Transmission Date: 20160815
  Serious: Yes (Death)
  Sender: FDA-Public Use
  Company Number: JP-MALLINCKRODT-T201602206

PATIENT
  Age: 53 Year
  Sex: Male
  Weight: 57 kg

DRUGS (10)
  1. LOXOPROFEN NA [Concomitant]
     Active Substance: LOXOPROFEN SODIUM
     Indication: ANALGESIC THERAPY
     Dosage: 180 MG
     Route: 048
     Dates: end: 20151130
  2. FERRUM [Concomitant]
     Active Substance: FERROUS FUMARATE
     Dosage: 100 MG
     Route: 048
     Dates: start: 20150910, end: 20151016
  3. ALOXI [Concomitant]
     Active Substance: PALONOSETRON HYDROCHLORIDE
     Dosage: 0.75 MG
     Route: 051
     Dates: start: 20150914, end: 20150914
  4. OXINORM [Concomitant]
     Active Substance: OXYCODONE HYDROCHLORIDE
     Indication: ANALGESIC THERAPY
     Dosage: 10 MG, PRN
     Route: 048
     Dates: start: 20150908
  5. RABEPRAZOLE NA [Concomitant]
     Active Substance: RABEPRAZOLE SODIUM
     Dosage: 10 MG
     Route: 048
     Dates: end: 20151130
  6. SENNOSIDE [Concomitant]
     Active Substance: SENNOSIDES
     Dosage: 24 MG
     Route: 048
     Dates: end: 20151018
  7. IRINOTECAN [Concomitant]
     Active Substance: IRINOTECAN
     Dosage: 160 MG
     Route: 051
     Dates: start: 20150914, end: 20150914
  8. DEXART [Concomitant]
     Active Substance: DEXAMETHASONE SODIUM PHOSPHATE
     Dosage: 6.6 MG
     Route: 051
     Dates: start: 20150914, end: 20150914
  9. METHADONE [Suspect]
     Active Substance: METHADONE HYDROCHLORIDE
     Indication: CANCER PAIN
     Dosage: 5 MG (15 MG DAILY DOSE)
     Route: 048
     Dates: start: 20150909, end: 20151102
  10. METHADONE [Suspect]
     Active Substance: METHADONE HYDROCHLORIDE
     Dosage: 10 MG (30 MG DAILY DOSE)
     Route: 048
     Dates: start: 20151102, end: 20151130

REACTIONS (1)
  - Rectal cancer [Fatal]
